FAERS Safety Report 8818829 (Version 1)
Quarter: 2012Q4

REPORT INFORMATION
  Report Type: Spontaneous
  Country: US (occurrence: None)
  Receive Date: 20121004
  Receipt Date: 20121004
  Transmission Date: 20130627
  Serious: Yes (Other)
  Sender: FDA-Public Use
  Company Number: None

PATIENT
  Age: 21 Year
  Sex: Female

DRUGS (3)
  1. ESCITALOPRAM [Suspect]
     Indication: MAJOR DEPRESSION
     Route: 048
     Dates: start: 201203, end: 20120402
  2. ESCITALOPRAM [Suspect]
     Indication: PANIC DISORDER
     Route: 048
     Dates: start: 201203, end: 20120402
  3. LAMOTRIGINE [Concomitant]

REACTIONS (5)
  - Product substitution issue [None]
  - Disease recurrence [None]
  - Depression [None]
  - Irritability [None]
  - Panic attack [None]
